FAERS Safety Report 11983537 (Version 6)
Quarter: 2016Q2

REPORT INFORMATION
  Report Type: Spontaneous
  Country: US (occurrence: US)
  Receive Date: 20160201
  Receipt Date: 20160401
  Transmission Date: 20160815
  Serious: Yes (Hospitalization)
  Sender: FDA-Public Use
  Company Number: US-ACTELION PHARMACEUTICALS US, INC.-A-US2016-130726

PATIENT
  Age: 67 Year
  Sex: Female

DRUGS (4)
  1. TRACLEER [Suspect]
     Active Substance: BOSENTAN
     Indication: PULMONARY ARTERIAL HYPERTENSION
     Dosage: UNK
     Route: 048
  2. TYVASO [Concomitant]
     Active Substance: TREPROSTINIL
  3. REMODULIN [Concomitant]
     Active Substance: TREPROSTINIL
  4. SILDENAFIL. [Concomitant]
     Active Substance: SILDENAFIL

REACTIONS (17)
  - Cough [Unknown]
  - Bronchitis [Unknown]
  - Musculoskeletal chest pain [Unknown]
  - Pyrexia [Unknown]
  - Palpitations [Unknown]
  - Lung infection [Unknown]
  - Abdominal discomfort [Unknown]
  - Headache [Unknown]
  - Respiratory syncytial virus infection [Unknown]
  - Influenza [Unknown]
  - Malaise [Unknown]
  - Nasopharyngitis [Unknown]
  - Chest pain [Unknown]
  - Respiratory distress [Unknown]
  - Wheezing [Unknown]
  - Heart rate increased [Unknown]
  - Nasal congestion [Unknown]

NARRATIVE: CASE EVENT DATE: 20160123
